APPROVED DRUG PRODUCT: AUGMENTIN '250'
Active Ingredient: AMOXICILLIN; CLAVULANATE POTASSIUM
Strength: 250MG;EQ 62.5MG BASE **Federal Register determination that product was not discontinued or withdrawn for safety or effectiveness reasons**
Dosage Form/Route: TABLET, CHEWABLE;ORAL
Application: N050597 | Product #002
Applicant: US ANTIBIOTICS LLC
Approved: Jul 22, 1985 | RLD: Yes | RS: No | Type: DISCN